FAERS Safety Report 17044830 (Version 1)
Quarter: 2019Q4

REPORT INFORMATION
  Report Type: Spontaneous
  Country: KZ (occurrence: KZ)
  Receive Date: 20191118
  Receipt Date: 20191118
  Transmission Date: 20200122
  Serious: Yes (Death, Hospitalization, Other)
  Sender: FDA-Public Use
  Company Number: NVSC2019KZ038713

PATIENT
  Age: 60 Year
  Sex: Female
  Weight: 34 kg

DRUGS (7)
  1. DELAMANID [Suspect]
     Active Substance: DELAMANID
     Indication: PULMONARY TUBERCULOSIS
     Dosage: 200 MG, QD
     Route: 048
     Dates: start: 20180924, end: 20190206
  2. BEDAQUILINE [Suspect]
     Active Substance: BEDAQUILINE
     Indication: PULMONARY TUBERCULOSIS
     Dosage: 400 MG, QD
     Route: 048
     Dates: start: 20190212
  3. CLOFAZIMINE [Suspect]
     Active Substance: CLOFAZIMINE
     Indication: PULMONARY TUBERCULOSIS
     Dosage: 200 MG, QD
     Route: 048
     Dates: start: 20190219
  4. LINEZOLID. [Suspect]
     Active Substance: LINEZOLID
     Indication: PULMONARY TUBERCULOSIS
     Dosage: 600 MG, QD
     Route: 048
     Dates: start: 20190924
  5. PYRAZINAMIDE. [Suspect]
     Active Substance: PYRAZINAMIDE
     Indication: PULMONARY TUBERCULOSIS
     Dosage: 1500 MG, QD
     Route: 048
     Dates: start: 20180924
  6. CAPREOMYCIN [Suspect]
     Active Substance: CAPREOMYCIN
     Indication: PULMONARY TUBERCULOSIS
     Dosage: 1000 MG, QD
     Route: 030
     Dates: start: 20180924, end: 20190417
  7. MOXIFLOXACIN. [Suspect]
     Active Substance: MOXIFLOXACIN
     Indication: PULMONARY TUBERCULOSIS
     Dosage: 400 MG, QD
     Route: 048
     Dates: start: 20180924, end: 20190228

REACTIONS (8)
  - Ulcer [Unknown]
  - Infection [Fatal]
  - Pyelonephritis chronic [Unknown]
  - Shock [Fatal]
  - Duodenal perforation [Unknown]
  - Cholecystitis chronic [Unknown]
  - Intestinal obstruction [Unknown]
  - Peritonitis [Unknown]

NARRATIVE: CASE EVENT DATE: 20191011
